FAERS Safety Report 15539018 (Version 1)
Quarter: 2018Q4

REPORT INFORMATION
  Report Type: Spontaneous
  Country: FR (occurrence: FR)
  Receive Date: 20181022
  Receipt Date: 20181022
  Transmission Date: 20190205
  Serious: Yes (Hospitalization)
  Sender: FDA-Public Use
  Company Number: FR-PFIZER INC-2018425283

PATIENT
  Age: 27 Year
  Sex: Female
  Weight: 73 kg

DRUGS (6)
  1. BACTRIM [Suspect]
     Active Substance: SULFAMETHOXAZOLE\TRIMETHOPRIM
     Indication: PROPHYLAXIS
     Dosage: 3 DF, WEEKLY
     Route: 048
     Dates: start: 20180814, end: 20180904
  2. DOXORUBICIN HCL [Suspect]
     Active Substance: DOXORUBICIN HYDROCHLORIDE
     Indication: HODGKIN^S DISEASE
     Dosage: 62 MG, SINGLE, (D1 OF SECOND CUREMENT 04SEP2018)
     Route: 042
     Dates: start: 20180814, end: 20180905
  3. ETOPOSIDE. [Concomitant]
     Active Substance: ETOPOSIDE
     Indication: HODGKIN^S DISEASE
     Dosage: 354 MG, 1X/DAY (D1, D2,D3 OF SECOND CUREMENT 04SEP2018)
     Route: 042
     Dates: start: 20180814, end: 20180907
  4. CYCLOPHOSPHAMIDE. [Concomitant]
     Active Substance: CYCLOPHOSPHAMIDE
     Indication: HODGKIN^S DISEASE
     Dosage: 2220 MG, SINGLE, (D1 OF SECOND CUREMENT 04SEP2018)
     Route: 042
     Dates: start: 20180814, end: 20180907
  5. PROCARBAZINE HCL [Suspect]
     Active Substance: PROCARBAZINE HYDROCHLORIDE
     Indication: HODGKIN^S DISEASE
     Route: 048
     Dates: start: 20180814, end: 20180907
  6. MESNA. [Concomitant]
     Active Substance: MESNA
     Indication: PREMEDICATION
     Dosage: 1440 MG, UNK, (D1 OF SECOND CUREMENT 04SEP2018)
     Route: 042
     Dates: start: 20180814, end: 20180907

REACTIONS (1)
  - Dermatitis exfoliative generalised [Recovered/Resolved]

NARRATIVE: CASE EVENT DATE: 20180904
